FAERS Safety Report 16223771 (Version 1)
Quarter: 2019Q2

REPORT INFORMATION
  Report Type: Spontaneous
  Country: LV (occurrence: LV)
  Receive Date: 20190422
  Receipt Date: 20190422
  Transmission Date: 20190711
  Serious: Yes (Hospitalization)
  Sender: FDA-Public Use
  Company Number: LV-JNJFOC-20190430953

PATIENT
  Age: 81 Year
  Sex: Female

DRUGS (6)
  1. RANEXA [Concomitant]
     Active Substance: RANOLAZINE
     Route: 048
  2. XARELTO [Suspect]
     Active Substance: RIVAROXABAN
     Indication: ATRIAL FIBRILLATION
     Route: 048
     Dates: start: 20190228
  3. BETAX [Concomitant]
     Route: 048
  4. TORVACARD [Concomitant]
     Active Substance: ATORVASTATIN CALCIUM
     Route: 048
  5. XARELTO [Suspect]
     Active Substance: RIVAROXABAN
     Indication: ATRIAL FIBRILLATION
     Route: 048
     Dates: start: 20181115, end: 20190226
  6. TRIPLIXAM [Concomitant]
     Active Substance: AMLODIPINE BESYLATE\INDAPAMIDE\PERINDOPRIL ARGININE
     Route: 048

REACTIONS (2)
  - Peripheral embolism [Recovering/Resolving]
  - Drug ineffective [Unknown]

NARRATIVE: CASE EVENT DATE: 20190226
